FAERS Safety Report 5839166-5 (Version None)
Quarter: 2008Q3

REPORT INFORMATION
  Report Type: 
  Country: None (occurrence: None)
  Receive Date: 20080808
  Receipt Date: 20080731
  Transmission Date: 20090109
  Serious: Yes (Hospitalization)
  Sender: FDA-Public Use
  Company Number: JP-PFIZER INC-2008055151

PATIENT
  Sex: Female
  Weight: 57 kg

DRUGS (6)
  1. SU-011,248 [Suspect]
     Indication: METASTATIC RENAL CELL CARCINOMA
     Route: 048
  2. ALLOPURINOL [Interacting]
     Route: 048
     Dates: start: 20080617, end: 20080630
  3. URALYT URATO [Concomitant]
     Route: 048
     Dates: start: 20080617, end: 20080630
  4. BLOPRESS [Concomitant]
  5. LEVOTHYROXINE SODIUM [Concomitant]
     Route: 048
     Dates: start: 20080604, end: 20080630
  6. DERMOVATE [Concomitant]
     Route: 061
     Dates: start: 20080501, end: 20080703

REACTIONS (2)
  - DRUG INTERACTION [None]
  - ERYTHEMA [None]
